FAERS Safety Report 6822162-9 (Version None)
Quarter: 2010Q3

REPORT INFORMATION
  Report Type: 
  Country: None (occurrence: None)
  Receive Date: 20100708
  Receipt Date: 20100629
  Transmission Date: 20110219
  Serious: Yes (Other)
  Sender: FDA-Public Use
  Company Number: TW-JNJFOC-20100700719

PATIENT
  Age: 14 Year
  Sex: Male

DRUGS (6)
  1. CONCERTA [Suspect]
     Indication: MENTAL RETARDATION
     Route: 048
  2. CONCERTA [Suspect]
     Indication: CONDUCT DISORDER
     Route: 048
  3. CONCERTA [Suspect]
     Indication: ATTENTION DEFICIT/HYPERACTIVITY DISORDER
     Route: 048
  4. ZOLOFT [Suspect]
     Indication: HYPERPHAGIA
     Route: 065
  5. ZOLOFT [Suspect]
     Indication: AGGRESSION
     Route: 065
  6. ZOLOFT [Suspect]
     Indication: DERMATILLOMANIA
     Route: 065

REACTIONS (4)
  - ABNORMAL BEHAVIOUR [None]
  - AGGRESSION [None]
  - DERMATILLOMANIA [None]
  - HYPERPHAGIA [None]
